FAERS Safety Report 25369832 (Version 1)
Quarter: 2025Q2

REPORT INFORMATION
  Report Type: Spontaneous
  Country: FR (occurrence: FR)
  Receive Date: 20250528
  Receipt Date: 20250528
  Transmission Date: 20250716
  Serious: Yes (Hospitalization)
  Sender: FERRING
  Company Number: None

PATIENT

DRUGS (4)
  1. FIRMAGON [Interacting]
     Active Substance: DEGARELIX ACETATE
     Indication: Hormone-dependent prostate cancer
     Dosage: 80 MG, MONTHLY
     Route: 058
     Dates: start: 202408, end: 20250219
  2. XTANDI [Interacting]
     Active Substance: ENZALUTAMIDE
     Indication: Hormone-dependent prostate cancer
     Dosage: 160 MG, 1 TIME DAILY
     Route: 048
     Dates: start: 20250218, end: 20250220
  3. ESCITALOPRAM [Interacting]
     Active Substance: ESCITALOPRAM OXALATE
     Indication: Mixed anxiety and depressive disorder
     Dosage: 20 MG, 1 TIME DAILY
     Route: 048
  4. ALPRAZOLAM [Interacting]
     Active Substance: ALPRAZOLAM
     Indication: Mixed anxiety and depressive disorder
     Dosage: 1 MG, 1 TIME DAILY
     Route: 048

REACTIONS (2)
  - Suicide attempt [Recovered/Resolved]
  - Drug interaction [Recovered/Resolved]

NARRATIVE: CASE EVENT DATE: 20250218
